FAERS Safety Report 6120567-5 (Version None)
Quarter: 2009Q1

REPORT INFORMATION
  Report Type: 
  Country: None (occurrence: None)
  Receive Date: 20090312
  Receipt Date: 20090312
  Transmission Date: 20090719
  Serious: Yes (Other)
  Sender: FDA-Public Use
  Company Number: None

PATIENT
  Age: 44 Year
  Sex: Male

DRUGS (1)
  1. SIMVASTATIN [Suspect]
     Dosage: ONE TABLET BY MOUTH DAILY
     Route: 048

REACTIONS (2)
  - PAIN IN EXTREMITY [None]
  - PRODUCT QUALITY ISSUE [None]
